FAERS Safety Report 25545005 (Version 1)
Quarter: 2025Q3

REPORT INFORMATION
  Report Type: Report from Study
  Country: US (occurrence: US)
  Receive Date: 20250711
  Receipt Date: 20250711
  Transmission Date: 20251020
  Serious: No
  Sender: SANDOZ
  Company Number: US-SANDOZ-SDZ2025US046148

PATIENT

DRUGS (4)
  1. OMNITROPE [Suspect]
     Active Substance: SOMATROPIN
     Indication: Product used for unknown indication
     Route: 065
  2. OMNITROPE [Suspect]
     Active Substance: SOMATROPIN
     Indication: Product used for unknown indication
     Route: 065
  3. OMNITROPE [Suspect]
     Active Substance: SOMATROPIN
  4. OMNITROPE [Suspect]
     Active Substance: SOMATROPIN

REACTIONS (2)
  - Circumstance or information capable of leading to medication error [Unknown]
  - Device leakage [Unknown]
